FAERS Safety Report 4831424-6 (Version None)
Quarter: 2005Q4

REPORT INFORMATION
  Report Type: 
  Country: None (occurrence: None)
  Receive Date: 20051118
  Receipt Date: 20050922
  Transmission Date: 20060501
  Serious: Yes (Hospitalization)
  Sender: FDA-Public Use
  Company Number: DE-BRISTOL-MYERS SQUIBB COMPANY-13144753

PATIENT
  Sex: Male
  Weight: 82 kg

DRUGS (10)
  1. ATAZANAVIR [Suspect]
     Indication: HIV INFECTION
     Dates: start: 20040121
  2. DIDANOSINE [Suspect]
     Indication: HIV INFECTION
     Dates: start: 20040121
  3. LAMIVUDINE [Suspect]
     Indication: HIV INFECTION
     Dates: start: 19970401
  4. ZIDOVUDINE [Suspect]
     Indication: HIV INFECTION
     Dates: start: 19970301
  5. LOPINAVIR + RITONAVIR [Suspect]
     Indication: HIV INFECTION
     Dates: start: 20040121
  6. TENOFOVIR [Suspect]
     Indication: HIV INFECTION
     Dates: start: 20040121
  7. LOPINAVIR [Suspect]
     Indication: HIV INFECTION
     Dates: start: 20040121
  8. PRAVASTATIN [Concomitant]
     Indication: HYPERLIPIDAEMIA
  9. FLUVASTATIN [Concomitant]
     Indication: HYPERLIPIDAEMIA
  10. IMODIUM [Concomitant]
     Indication: DIARRHOEA

REACTIONS (2)
  - DIARRHOEA [None]
  - MYOCARDIAL INFARCTION [None]
